FAERS Safety Report 4511211-9 (Version None)
Quarter: 2004Q4

REPORT INFORMATION
  Report Type: 
  Country: None (occurrence: None)
  Receive Date: 20041122
  Receipt Date: 20041122
  Transmission Date: 20050328
  Serious: Yes (Other)
  Sender: FDA-Public Use
  Company Number: None

PATIENT
  Age: 72 Year
  Sex: Female
  Weight: 88.4514 kg

DRUGS (8)
  1. BEXTRA [Suspect]
     Indication: ARTHRITIS
     Dosage: 1 A DAY
     Dates: start: 20041102, end: 20041118
  2. BEXTRA [Suspect]
     Indication: EXOSTOSIS
     Dosage: 1 A DAY
     Dates: start: 20041102, end: 20041118
  3. VIOXX [Suspect]
     Indication: ARTHRITIS
     Dosage: 1 A DAY
     Dates: start: 20020502, end: 20040502
  4. ENALAPRIL [Concomitant]
  5. ATONOLOL [Concomitant]
  6. AFEDITAB [Concomitant]
  7. ZOCOR [Concomitant]
  8. METFORMAN [Concomitant]

REACTIONS (1)
  - BLOOD PRESSURE INCREASED [None]
